FAERS Safety Report 21908767 (Version 1)
Quarter: 2023Q1

REPORT INFORMATION
  Report Type: Spontaneous
  Country: TH (occurrence: TH)
  Receive Date: 20230125
  Receipt Date: 20230125
  Transmission Date: 20230417
  Serious: Yes (Death)
  Sender: FDA-Public Use
  Company Number: TH-002147023-NVSC2023TH016565

PATIENT
  Age: 73 Year
  Sex: Female

DRUGS (2)
  1. KISQALI [Suspect]
     Active Substance: RIBOCICLIB
     Indication: Breast cancer
     Dosage: 3 DOSAGE FORM, QD (3 TABLETS, 3 WEEKS-ON AND 1 WEEK-OFF CYCLE)
     Route: 065
     Dates: start: 20220825
  2. LETROZOLE [Suspect]
     Active Substance: LETROZOLE
     Indication: Breast cancer
     Dosage: UNK
     Route: 065
     Dates: start: 20220825

REACTIONS (1)
  - Death [Fatal]

NARRATIVE: CASE EVENT DATE: 20221130
